FAERS Safety Report 23230593 (Version 4)
Quarter: 2024Q1

REPORT INFORMATION
  Report Type: Spontaneous
  Country: US (occurrence: US)
  Receive Date: 20231127
  Receipt Date: 20240118
  Transmission Date: 20240409
  Serious: Yes (Hospitalization)
  Sender: FDA-Public Use
  Company Number: US-BRISTOL-MYERS SQUIBB COMPANY-2023-167962

PATIENT
  Age: 70 Year
  Sex: Male

DRUGS (1)
  1. REVLIMID [Suspect]
     Active Substance: LENALIDOMIDE
     Indication: Plasma cell myeloma
     Dosage: TAKE 1 CAPSULE BY MOUTH WHOLE WITH WATER AT THE SAME TIME EACH DAY ON DAYS 1-21 OF 28-DAY CYCLE
     Route: 048
     Dates: start: 20231117

REACTIONS (4)
  - Renal failure [Not Recovered/Not Resolved]
  - Pyrexia [Unknown]
  - Lethargy [Unknown]
  - Gait inability [Unknown]

NARRATIVE: CASE EVENT DATE: 20231117
